FAERS Safety Report 7656168-7 (Version None)
Quarter: 2011Q3

REPORT INFORMATION
  Report Type: 
  Country: None (occurrence: None)
  Receive Date: 20110804
  Receipt Date: 20110729
  Transmission Date: 20111222
  Serious: Yes (Hospitalization)
  Sender: FDA-Public Use
  Company Number: FR-PFIZER INC-2011172791

PATIENT
  Age: 15 Year
  Sex: Female

DRUGS (3)
  1. CLINDAMYCIN HCL [Suspect]
     Dosage: 600 MG, 4X/DAY
     Route: 048
     Dates: start: 20110601, end: 20110628
  2. BACTRIM DS [Suspect]
     Dosage: 2 DF, 3X/DAY
     Route: 048
     Dates: start: 20110601, end: 20110627
  3. DOXYCYCLINE HYCLATE [Suspect]
     Dosage: 200 MG, 1X/DAY
     Route: 048
     Dates: start: 20110601, end: 20110628

REACTIONS (2)
  - LEUKOPENIA [None]
  - AGRANULOCYTOSIS [None]
